FAERS Safety Report 4697119-7 (Version None)
Quarter: 2005Q2

REPORT INFORMATION
  Report Type: 
  Country: None (occurrence: None)
  Receive Date: 20050622
  Receipt Date: 20050616
  Transmission Date: 20051028
  Serious: Yes (Hospitalization)
  Sender: FDA-Public Use
  Company Number: BR-ROCHE-408099

PATIENT
  Age: 24 Year
  Sex: Male
  Weight: 63 kg

DRUGS (3)
  1. CLONAZEPAM [Suspect]
     Indication: EPILEPSY
     Route: 048
     Dates: start: 20050615
  2. TEGRETOL [Concomitant]
     Route: 048
  3. 1 CONCOMITANT DRUG [Concomitant]
     Route: 048

REACTIONS (2)
  - DIZZINESS [None]
  - SYNCOPE [None]
